FAERS Safety Report 22190242 (Version 3)
Quarter: 2023Q2

REPORT INFORMATION
  Report Type: Report from Study
  Country: PT (occurrence: PT)
  Receive Date: 20230410
  Receipt Date: 20230503
  Transmission Date: 20230722
  Serious: Yes (Other)
  Sender: FDA-Public Use
  Company Number: PT-ABBVIE-4720214

PATIENT
  Age: 72 Year
  Sex: Female

DRUGS (9)
  1. CARBIDOPA\LEVODOPA [Suspect]
     Active Substance: CARBIDOPA\LEVODOPA
     Indication: Parkinson^s disease
     Dosage: 20 MG + 5 MG??FREQUENCY TEXT: MORN:13.6CC;MAINT:3.2CC/H;EXTRA:1CC
     Route: 050
     Dates: start: 20210413
  2. CARBIDOPA\LEVODOPA [Suspect]
     Active Substance: CARBIDOPA\LEVODOPA
     Dosage: FREQUENCY TEXT: MORN:10CC;MAINT:3.9CC/H;EXTRA:2CC?20 MG + 5 MG
     Route: 050
     Dates: start: 202303
  3. FLAGYL [Concomitant]
     Active Substance: METRONIDAZOLE\METRONIDAZOLE HYDROCHLORIDE
     Indication: Thrombophlebitis
     Dates: start: 2021
  4. AMOXICILLIN\CLAVULANATE POTASSIUM [Concomitant]
     Active Substance: AMOXICILLIN\CLAVULANATE POTASSIUM
     Indication: Thrombophlebitis
     Dates: start: 2021
  5. DULOXETINE [Concomitant]
     Active Substance: DULOXETINE
     Indication: Product used for unknown indication
     Dosage: START DATE TEXT: BEFORE DUODOPA
  6. METRONIDAZOLE [Concomitant]
     Active Substance: METRONIDAZOLE
     Indication: Thrombophlebitis
     Dates: start: 2021
  7. SINEMET CR [Concomitant]
     Active Substance: CARBIDOPA\LEVODOPA
     Indication: Product used for unknown indication
     Dosage: START DATE TEXT: BEFORE DUODOPA
  8. PRAMIPEXOLE [Concomitant]
     Active Substance: PRAMIPEXOLE
     Indication: Product used for unknown indication
     Dosage: START DATE TEXT: BEFORE DUODOPA
  9. Amoxicillin/clavulanic acid (Amoxiclav) [Concomitant]
     Indication: Thrombophlebitis
     Dates: start: 2021

REACTIONS (3)
  - Escherichia urinary tract infection [Not Recovered/Not Resolved]
  - Leukocyturia [Not Recovered/Not Resolved]
  - Urine odour abnormal [Recovered/Resolved]

NARRATIVE: CASE EVENT DATE: 20230301
